FAERS Safety Report 23598067 (Version 6)
Quarter: 2024Q3

REPORT INFORMATION
  Report Type: Spontaneous
  Country: JP (occurrence: None)
  Receive Date: 20240305
  Receipt Date: 20240806
  Transmission Date: 20241017
  Serious: Yes (Other)
  Sender: ASTRAZENECA
  Company Number: 2024A052956

PATIENT
  Age: 66 Year
  Sex: Male
  Weight: 54 kg

DRUGS (14)
  1. ONDEXXYA [Suspect]
     Active Substance: ANDEXANET ALFA
     Indication: Cerebral haemorrhage
     Dosage: 1000.0MG UNKNOWN
     Route: 042
     Dates: start: 20240215, end: 20240215
  2. ONDEXXYA [Suspect]
     Active Substance: ANDEXANET ALFA
     Indication: Putamen haemorrhage
     Dosage: 1000.0MG UNKNOWN
     Route: 042
     Dates: start: 20240215, end: 20240215
  3. EDOXABAN TOSYLATE [Concomitant]
     Active Substance: EDOXABAN TOSYLATE
     Dosage: DOSE UNKNOWN
  4. DILTIAZEM HYDROCHLORIDE [Concomitant]
     Active Substance: DILTIAZEM HYDROCHLORIDE
     Indication: Putamen haemorrhage
     Route: 041
     Dates: start: 20240214, end: 20240218
  5. CARBAZOCHROME [Concomitant]
     Active Substance: CARBAZOCHROME
     Indication: Putamen haemorrhage
     Route: 041
     Dates: start: 20240214, end: 20240214
  6. TRANEXAMIC ACID [Concomitant]
     Active Substance: TRANEXAMIC ACID
     Indication: Putamen haemorrhage
     Route: 041
     Dates: start: 20240214, end: 20240214
  7. METOCLOPRAMIDE HYDROCHLORIDE [Concomitant]
     Active Substance: METOCLOPRAMIDE HYDROCHLORIDE
     Indication: Putamen haemorrhage
     Dosage: DOSE UNKNOWN
     Route: 041
     Dates: start: 20240214, end: 20240214
  8. FAMOTIDINE [Concomitant]
     Active Substance: FAMOTIDINE
     Indication: Putamen haemorrhage
     Route: 041
     Dates: start: 20240215, end: 20240216
  9. FRUCTOSE\GLYCERIN [Concomitant]
     Active Substance: FRUCTOSE\GLYCERIN
     Indication: Putamen haemorrhage
     Route: 041
     Dates: start: 20240215, end: 20240217
  10. AMLODIPINE [Concomitant]
     Active Substance: AMLODIPINE BESYLATE
     Indication: Hypertension
     Route: 048
     Dates: start: 20240216, end: 20240327
  11. VONOPRAZAN FUMARATE [Concomitant]
     Active Substance: VONOPRAZAN FUMARATE
     Route: 048
     Dates: start: 20240216, end: 20240327
  12. SILODOSIN OD [Concomitant]
     Indication: Benign prostatic hyperplasia
     Route: 048
     Dates: start: 20240301, end: 20240328
  13. BETHANECHOL CHLORIDE [Concomitant]
     Active Substance: BETHANECHOL CHLORIDE
     Indication: Benign prostatic hyperplasia
     Route: 048
     Dates: start: 20240306, end: 20240328
  14. LEVOFLOXACIN HEMIHYDRATE [Concomitant]
     Active Substance: LEVOFLOXACIN
     Route: 048
     Dates: start: 20240306, end: 20240312

REACTIONS (3)
  - Embolic cerebral infarction [Recovering/Resolving]
  - Benign prostatic hyperplasia [Not Recovered/Not Resolved]
  - Dysuria [Not Recovered/Not Resolved]

NARRATIVE: CASE EVENT DATE: 20240216
